FAERS Safety Report 19129455 (Version 2)
Quarter: 2021Q2

REPORT INFORMATION
  Report Type: Spontaneous
  Country: JP (occurrence: JP)
  Receive Date: 20210413
  Receipt Date: 20210426
  Transmission Date: 20210717
  Serious: Yes (Hospitalization)
  Sender: FDA-Public Use
  Company Number: JP-UCBSA-2021017081

PATIENT
  Age: 35 Year
  Sex: Male

DRUGS (3)
  1. E KEPPRA [Suspect]
     Active Substance: LEVETIRACETAM
     Indication: INTELLECTUAL DISABILITY
     Dosage: UNKNOWN DOSE
     Route: 048
  2. PIPAMPERONE HYDROCHLORIDE [Suspect]
     Active Substance: PIPAMPERONE HYDROCHLORIDE
     Indication: PSYCHOTHERAPY
     Dosage: UNKNOWN DOSE
     Route: 048
  3. E KEPPRA [Suspect]
     Active Substance: LEVETIRACETAM
     Indication: OFF LABEL USE

REACTIONS (3)
  - Ventricular fibrillation [Unknown]
  - Ventricular extrasystoles [Unknown]
  - Off label use [Unknown]

NARRATIVE: CASE EVENT DATE: 201907
